FAERS Safety Report 12516929 (Version 2)
Quarter: 2017Q4

REPORT INFORMATION
  Report Type: Spontaneous
  Country: US (occurrence: US)
  Receive Date: 20160630
  Receipt Date: 20171009
  Transmission Date: 20180320
  Serious: Yes (Life-Threatening)
  Sender: FDA-Public Use
  Company Number: US-SUN PHARMACEUTICAL INDUSTRIES LTD-2016US-119030

PATIENT
  Age: 41 Year
  Sex: Male

DRUGS (2)
  1. PSEUDOEPHEDRINE [Suspect]
     Active Substance: PSEUDOEPHEDRINE
     Indication: PRIAPISM
     Dosage: TWO DOSES
     Route: 065
  2. TERBUTALINE [Suspect]
     Active Substance: TERBUTALINE
     Indication: PRIAPISM
     Dosage: TWO DOSES
     Route: 065

REACTIONS (3)
  - Vasospasm [Recovered/Resolved]
  - Drug ineffective [Unknown]
  - Potentiating drug interaction [Unknown]
